FAERS Safety Report 8480423-4 (Version None)
Quarter: 2012Q3

REPORT INFORMATION
  Report Type: 
  Country: None (occurrence: None)
  Receive Date: 20120702
  Receipt Date: 20120618
  Transmission Date: 20120928
  Serious: Yes (Hospitalization)
  Sender: FDA-Public Use
  Company Number: DE-GE HEALTHCARE MEDICAL DIAGNOSTICS-OMPQ-GE-1206S-0617

PATIENT
  Age: 64 Year
  Weight: 78 kg

DRUGS (1)
  1. ACCUPAQUE [Suspect]
     Indication: PRODUCT USED FOR UNKNOWN INDICATION
     Route: 013
     Dates: start: 20111201, end: 20111201

REACTIONS (4)
  - PRESYNCOPE [None]
  - DYSARTHRIA [None]
  - HYPOAESTHESIA ORAL [None]
  - PARAESTHESIA [None]
